FAERS Safety Report 9096262 (Version 2)
Quarter: 2013Q1

REPORT INFORMATION
  Report Type: Spontaneous
  Country: US (occurrence: US)
  Receive Date: 20130207
  Receipt Date: 20130219
  Transmission Date: 20140127
  Serious: Yes (Other)
  Sender: FDA-Public Use
  Company Number: US-PFIZER INC-2013049587

PATIENT
  Age: 57 Year
  Sex: Female
  Weight: 108.84 kg

DRUGS (1)
  1. LYRICA [Suspect]
     Indication: DIABETIC NEUROPATHY
     Dosage: 150MG IN MORNING AND 75MG AT NIGHT
     Route: 048

REACTIONS (1)
  - Breast cancer in situ [Unknown]
